FAERS Safety Report 12737369 (Version 2)
Quarter: 2016Q3

REPORT INFORMATION
  Report Type: Spontaneous
  Country: CH (occurrence: CH)
  Receive Date: 20160912
  Receipt Date: 20160922
  Transmission Date: 20161109
  Serious: Yes (Other)
  Sender: FDA-Public Use
  Company Number: CH-AMGEN-CHESP2016120355

PATIENT
  Sex: Male
  Weight: 82 kg

DRUGS (2)
  1. MARCOUMAR [Concomitant]
     Active Substance: PHENPROCOUMON
     Indication: CARDIAC ANEURYSM
     Dosage: UNK
     Dates: start: 201207
  2. REPATHA [Suspect]
     Active Substance: EVOLOCUMAB
     Indication: PRODUCT USED FOR UNKNOWN INDICATION
     Dosage: 140 MG, Q2WK
     Route: 065
     Dates: start: 20160817

REACTIONS (1)
  - International normalised ratio increased [Recovered/Resolved]

NARRATIVE: CASE EVENT DATE: 20160902
